FAERS Safety Report 15915118 (Version 1)
Quarter: 2019Q1

REPORT INFORMATION
  Report Type: Spontaneous
  Country: US (occurrence: US)
  Receive Date: 20190110
  Receipt Date: 20190110
  Transmission Date: 20190417
  Serious: Yes (Life-Threatening, Hospitalization)
  Sender: FDA-Public Use
  Company Number: None

PATIENT
  Age: 59 Year
  Sex: Female
  Weight: 66.68 kg

DRUGS (4)
  1. 5-FU [Suspect]
     Active Substance: FLUOROURACIL
     Route: 042
     Dates: start: 20181114, end: 20181212
  2. ABRAXANE [Suspect]
     Active Substance: PACLITAXEL
     Indication: ADENOCARCINOMA PANCREAS
     Route: 042
     Dates: start: 20181114, end: 20181212
  3. OXALIPLATIN. [Suspect]
     Active Substance: OXALIPLATIN
     Route: 042
     Dates: start: 20181114, end: 20181212
  4. LEUCOVORIN. [Suspect]
     Active Substance: LEUCOVORIN
     Indication: ADENOCARCINOMA PANCREAS
     Route: 042
     Dates: start: 20181114, end: 20181212

REACTIONS (10)
  - Cardiomyopathy [None]
  - Thrombocytopenia [None]
  - Stress cardiomyopathy [None]
  - Tachycardia [None]
  - Haemoptysis [None]
  - Hypersensitivity [None]
  - Dyspnoea [None]
  - Cardiac failure [None]
  - Pulmonary oedema [None]
  - Bronchospasm [None]

NARRATIVE: CASE EVENT DATE: 20181212
